FAERS Safety Report 25754152 (Version 1)
Quarter: 2025Q3

REPORT INFORMATION
  Report Type: Report from Study
  Country: EU (occurrence: EU)
  Receive Date: 20250903
  Receipt Date: 20250903
  Transmission Date: 20251020
  Serious: Yes (Other)
  Sender: JOHNSON AND JOHNSON
  Company Number: EU-JNJFOC-20250833550

PATIENT
  Age: 83 Year
  Sex: Male

DRUGS (3)
  1. TECLISTAMAB [Suspect]
     Active Substance: TECLISTAMAB
     Indication: Plasma cell myeloma
     Route: 065
     Dates: start: 20240423
  2. TECLISTAMAB [Suspect]
     Active Substance: TECLISTAMAB
     Route: 065
     Dates: start: 20240425, end: 20240425
  3. TECLISTAMAB [Suspect]
     Active Substance: TECLISTAMAB
     Route: 065
     Dates: start: 20240427, end: 20240427

REACTIONS (2)
  - Pneumonitis [Recovered/Resolved]
  - Cytokine release syndrome [Recovered/Resolved]

NARRATIVE: CASE EVENT DATE: 20240425
